FAERS Safety Report 5960150-5 (Version None)
Quarter: 2008Q4

REPORT INFORMATION
  Report Type: 
  Country: None (occurrence: None)
  Receive Date: 20081118
  Receipt Date: 20081118
  Transmission Date: 20090506
  Serious: Yes (Hospitalization, Disabling, Other)
  Sender: FDA-Public Use
  Company Number: None

PATIENT
  Age: 43 Year
  Sex: Male
  Weight: 129.2752 kg

DRUGS (1)
  1. BUDEPRION XL 150MG ANCHEN PHARMACEUTICALS [Suspect]
     Indication: DEPRESSION
     Dosage: 150MG ONCE DAILY IN AM PO
     Route: 048
     Dates: start: 20080301, end: 20081015

REACTIONS (13)
  - ALCOHOL ABUSE [None]
  - ANXIETY [None]
  - APPETITE DISORDER [None]
  - CHEST PAIN [None]
  - CONDITION AGGRAVATED [None]
  - DEPRESSION [None]
  - ECONOMIC PROBLEM [None]
  - HYPERSENSITIVITY [None]
  - MENTAL IMPAIRMENT [None]
  - PARTNER STRESS [None]
  - THERAPEUTIC RESPONSE UNEXPECTED WITH DRUG SUBSTITUTION [None]
  - WEIGHT INCREASED [None]
  - WITHDRAWAL SYNDROME [None]
